FAERS Safety Report 11729588 (Version 1)
Quarter: 2015Q4

REPORT INFORMATION
  Report Type: Spontaneous
  Country: DK (occurrence: DK)
  Receive Date: 20151112
  Receipt Date: 20151112
  Transmission Date: 20160304
  Serious: Yes (Other)
  Sender: FDA-Public Use
  Company Number: PHHY2015DK144076

PATIENT
  Age: 69 Year
  Sex: Male

DRUGS (2)
  1. GLIVEC [Suspect]
     Active Substance: IMATINIB MESYLATE
     Indication: CHRONIC MYELOID LEUKAEMIA
     Dosage: 400 MG, QD
     Route: 065
  2. CIRCADIN [Interacting]
     Active Substance: MELATONIN
     Indication: INSOMNIA
     Dosage: 2 MG, QD (1-2 HOURS BEFORE BEDTIME)
     Route: 048
     Dates: start: 201503, end: 201509

REACTIONS (3)
  - Drug interaction [Unknown]
  - Chronic myeloid leukaemia recurrent [Recovered/Resolved]
  - Drug ineffective [Unknown]

NARRATIVE: CASE EVENT DATE: 20150616
